FAERS Safety Report 9801914 (Version 2)
Quarter: 2014Q1

REPORT INFORMATION
  Report Type: Spontaneous
  Country: US (occurrence: US)
  Receive Date: 20140107
  Receipt Date: 20140107
  Transmission Date: 20141002
  Serious: No
  Sender: FDA-Public Use
  Company Number: US-ALLERGAN-1305309US

PATIENT
  Age: 40 Year
  Sex: Female

DRUGS (1)
  1. ACZONE [Suspect]
     Indication: ACNE
     Dosage: UNK, BID
     Route: 061
     Dates: start: 201303

REACTIONS (4)
  - Acne [Recovering/Resolving]
  - Acne [Unknown]
  - Wrong technique in drug usage process [Unknown]
  - Drug ineffective [Unknown]
